FAERS Safety Report 23956457 (Version 1)
Quarter: 2024Q2

REPORT INFORMATION
  Report Type: Spontaneous
  Country: GB (occurrence: GB)
  Receive Date: 20240610
  Receipt Date: 20240610
  Transmission Date: 20240716
  Serious: Yes (Disabling, Other)
  Sender: FDA-Public Use
  Company Number: None

PATIENT
  Sex: Female

DRUGS (4)
  1. HYDROCORTISONE [Suspect]
     Active Substance: HYDROCORTISONE
     Indication: Eczema
     Route: 065
  2. CLOBETASOL [Concomitant]
     Active Substance: CLOBETASOL
  3. SYNALAR [Concomitant]
     Active Substance: FLUOCINOLONE ACETONIDE
  4. BETNOVATE [Concomitant]
     Active Substance: BETAMETHASONE

REACTIONS (1)
  - Topical steroid withdrawal reaction [Recovering/Resolving]

NARRATIVE: CASE EVENT DATE: 20230101
